FAERS Safety Report 10661119 (Version 5)
Quarter: 2015Q1

REPORT INFORMATION
  Report Type: Spontaneous
  Country: IT (occurrence: IT)
  Receive Date: 20141218
  Receipt Date: 20150102
  Transmission Date: 20150720
  Serious: Yes (Other)
  Sender: FDA-Public Use
  Company Number: IT-ACCORD-027514

PATIENT
  Age: 69 Year
  Sex: Male
  Weight: 72 kg

DRUGS (6)
  1. METFORAL [Concomitant]
     Active Substance: METFORMIN HYDROCHLORIDE
     Dosage: STRENGTH: 500 MG
  2. CARDIOASPIRIN [Concomitant]
     Active Substance: ASPIRIN
  3. APROVEL [Concomitant]
     Active Substance: IRBESARTAN
  4. ABRAXANE [Suspect]
     Active Substance: PACLITAXEL
     Indication: PANCREATIC CARCINOMA
     Route: 042
     Dates: start: 20140605
  5. GEMCITABINE/GEMCITABINE HYDROCHLORIDE [Suspect]
     Active Substance: GEMCITABINE\GEMCITABINE HYDROCHLORIDE
     Indication: PANCREATIC CARCINOMA
     Route: 042
     Dates: start: 20140605
  6. LEVEMIR [Concomitant]
     Active Substance: INSULIN DETEMIR

REACTIONS (7)
  - Stomatitis [Not Recovered/Not Resolved]
  - Constipation [Recovering/Resolving]
  - Asthenia [Not Recovered/Not Resolved]
  - Hyperbilirubinaemia [Unknown]
  - Diarrhoea [Not Recovered/Not Resolved]
  - Thrombocytosis [Unknown]
  - Dysgeusia [Recovering/Resolving]

NARRATIVE: CASE EVENT DATE: 20140607
